FAERS Safety Report 5678122-7 (Version None)
Quarter: 2008Q1

REPORT INFORMATION
  Report Type: 
  Country: None (occurrence: None)
  Receive Date: 20080324
  Receipt Date: 20080324
  Transmission Date: 20080703
  Serious: Yes (Hospitalization)
  Sender: FDA-Public Use
  Company Number: None

PATIENT
  Age: 20 Year
  Sex: Female
  Weight: 90.7194 kg

DRUGS (1)
  1. DOXYCYCLINE [Suspect]
     Indication: PHARYNGOLARYNGEAL PAIN
     Dosage: TAKE 1 CAPSULE BY MOUTH 2X DAY
     Route: 048
     Dates: start: 20080319, end: 20080320

REACTIONS (2)
  - ABDOMINAL PAIN UPPER [None]
  - DRUG PRESCRIBING ERROR [None]
